FAERS Safety Report 9834862 (Version 1)
Quarter: 2014Q1

REPORT INFORMATION
  Report Type: Spontaneous
  Country: US (occurrence: US)
  Receive Date: 20140122
  Receipt Date: 20140122
  Transmission Date: 20141002
  Serious: No
  Sender: FDA-Public Use
  Company Number: US-BAUSCH-BL-2013-003765

PATIENT
  Age: 90 Year
  Sex: Female
  Weight: 67.19 kg

DRUGS (3)
  1. ALAWAY (KETOTIFEN FUMARATE OPHTHALMIC SOLUTION) [Suspect]
     Indication: FOREIGN BODY SENSATION IN EYES
     Dosage: 1 DROP IN LEFT EYE, TWO TIMES PER DAY
     Route: 047
     Dates: start: 201306
  2. ALAWAY (KETOTIFEN FUMARATE OPHTHALMIC SOLUTION) [Suspect]
     Dosage: 1 DROP IN RIGHT EYE, TWO TIMES PER DAY
     Route: 047
     Dates: start: 201306
  3. PRESERVISION AREDS [Concomitant]

REACTIONS (2)
  - Dizziness [Recovered/Resolved]
  - Vision blurred [Recovered/Resolved]
